FAERS Safety Report 12497370 (Version 1)
Quarter: 2016Q2

REPORT INFORMATION
  Report Type: Spontaneous
  Country: CH (occurrence: CH)
  Receive Date: 20160624
  Receipt Date: 20160624
  Transmission Date: 20160815
  Serious: Yes (Hospitalization)
  Sender: FDA-Public Use
  Company Number: CH-MYLANLABS-2016M1025941

PATIENT

DRUGS (3)
  1. AMIODARONE [Interacting]
     Active Substance: AMIODARONE
     Indication: PALPITATIONS
     Route: 065
  2. PACLITAXEL. [Suspect]
     Active Substance: PACLITAXEL
     Indication: INVASIVE DUCTAL BREAST CARCINOMA
     Dosage: FOURTH CYCLE
     Route: 065
  3. DOCETAXEL. [Suspect]
     Active Substance: DOCETAXEL
     Indication: INVASIVE DUCTAL BREAST CARCINOMA
     Dosage: ONE CYCLE
     Route: 065

REACTIONS (5)
  - Toxicity to various agents [Recovering/Resolving]
  - Abdominal discomfort [Recovering/Resolving]
  - Skin reaction [Recovering/Resolving]
  - Labelled drug-drug interaction medication error [Recovering/Resolving]
  - Mucosal inflammation [Recovering/Resolving]
